FAERS Safety Report 25155867 (Version 3)
Quarter: 2025Q2

REPORT INFORMATION
  Report Type: Spontaneous
  Country: US (occurrence: US)
  Receive Date: 20250403
  Receipt Date: 20250505
  Transmission Date: 20250717
  Serious: No
  Sender: PFIZER
  Company Number: US-PFIZER INC-202500070146

PATIENT
  Age: 9 Year
  Sex: Female
  Weight: 28.12 kg

DRUGS (3)
  1. GENOTROPIN [Suspect]
     Active Substance: SOMATROPIN
     Indication: Growth hormone deficiency
     Dosage: 0.7, EVERY NIGHT BEFORE SHE SLEEP, ONCE A DAY
     Dates: start: 20250317
  2. LEVOTHYROXINE [Concomitant]
     Active Substance: LEVOTHYROXINE
     Indication: Thyroid disorder
  3. CORTISONE [Concomitant]
     Active Substance: CORTISONE
     Indication: Blood glucose decreased

REACTIONS (3)
  - Poor quality device used [Unknown]
  - Device leakage [Unknown]
  - Device information output issue [Unknown]
